FAERS Safety Report 9178399 (Version 1)
Quarter: 2012Q4

REPORT INFORMATION
  Report Type: 
  Country: US (occurrence: US)
  Receive Date: 20121029
  Receipt Date: 20121029
  Transmission Date: 20130627
  Serious: No
  Sender: FDA-Public Use
  Company Number: US-PFIZER INC-2012267144

PATIENT
  Age: 45 Year
  Sex: Female
  Weight: 101.59 kg

DRUGS (4)
  1. BOSULIF [Suspect]
     Indication: CHRONIC MYELOGENOUS LEUKEMIA
     Dosage: 500 mg, 1x/day
     Route: 048
     Dates: start: 20121020
  2. EFFEXOR [Concomitant]
     Dosage: UNK
  3. HYDROCODONE [Concomitant]
     Dosage: UNK
  4. CARAFATE [Concomitant]
     Dosage: UNK

REACTIONS (1)
  - Diarrhoea [Recovered/Resolved]
